FAERS Safety Report 19131804 (Version 1)
Quarter: 2021Q2

REPORT INFORMATION
  Report Type: Spontaneous
  Country: IT (occurrence: IT)
  Receive Date: 20210414
  Receipt Date: 20210414
  Transmission Date: 20210717
  Serious: Yes (Other)
  Sender: FDA-Public Use
  Company Number: NVSC2021IT076916

PATIENT
  Age: 17 Year
  Sex: Female

DRUGS (5)
  1. SEROQUEL [Concomitant]
     Active Substance: QUETIAPINE FUMARATE
     Indication: ANOREXIA NERVOSA
     Dosage: 1 DF
     Route: 048
  2. EUTIROX [Concomitant]
     Active Substance: LEVOTHYROXINE SODIUM
     Indication: HYPOTHYROIDISM
     Dosage: 1 DF
     Route: 048
  3. PARACETAMOL [Suspect]
     Active Substance: ACETAMINOPHEN
     Indication: DRUG ABUSE
     Dosage: 16 G (TOTAL)
     Route: 048
     Dates: start: 20210221, end: 20210221
  4. KETODOL (KETOPROFEN\SUCRALFATE) [Suspect]
     Active Substance: KETOPROFEN\SUCRALFATE
     Indication: DRUG ABUSE
     Dosage: 18 DF (TOTAL)
     Route: 048
     Dates: start: 20210221, end: 20210221
  5. ARTROSILENE [Suspect]
     Active Substance: KETOPROFEN
     Indication: DRUG ABUSE
     Dosage: 16 DF (TOTAL)
     Route: 048
     Dates: start: 20210221, end: 20210221

REACTIONS (4)
  - Hypertransaminasaemia [Recovered/Resolved]
  - Intentional self-injury [Recovered/Resolved]
  - Vomiting [Recovered/Resolved]
  - Drug abuse [Recovered/Resolved]

NARRATIVE: CASE EVENT DATE: 20210221
